FAERS Safety Report 9509865 (Version 1)
Quarter: 2013Q3

REPORT INFORMATION
  Report Type: Spontaneous
  Country: US (occurrence: US)
  Receive Date: 20130909
  Receipt Date: 20130909
  Transmission Date: 20140515
  Serious: Yes (Death)
  Sender: FDA-Public Use
  Company Number: CHPA2013US013880

PATIENT
  Age: 93 Year
  Sex: Female

DRUGS (1)
  1. DESENEX [Suspect]
     Indication: RASH PRURITIC
     Dosage: UNK, BID
     Route: 061
     Dates: end: 2008

REACTIONS (3)
  - Death [Fatal]
  - Therapeutic response unexpected [Unknown]
  - Off label use [Unknown]
